FAERS Safety Report 5799321-X (Version None)
Quarter: 2008Q3

REPORT INFORMATION
  Report Type: 
  Country: None (occurrence: None)
  Receive Date: 20080702
  Receipt Date: 20080620
  Transmission Date: 20090109
  Serious: Yes (Other)
  Sender: FDA-Public Use
  Company Number: GB-PFIZER INC-2008052833

PATIENT

DRUGS (1)
  1. EPANUTIN INJECTABLE [Suspect]
     Indication: CONVULSION
     Route: 042

REACTIONS (2)
  - BRADYCARDIA [None]
  - CARDIAC DISORDER [None]
